FAERS Safety Report 24738989 (Version 1)
Quarter: 2024Q4

REPORT INFORMATION
  Report Type: Report from Study
  Country: CA (occurrence: CA)
  Receive Date: 20241216
  Receipt Date: 20241216
  Transmission Date: 20250115
  Serious: Yes (Other)
  Sender: REGENERON
  Company Number: CA-BAYER-2024A176588

PATIENT
  Sex: Female

DRUGS (2)
  1. EYLEA [Suspect]
     Active Substance: AFLIBERCEPT
     Indication: Diabetic retinal oedema
     Dosage: 19 DOSES RIGHT EYE; 40 M/ML
     Route: 031
     Dates: start: 20190305, end: 20210311
  2. EYLEA [Suspect]
     Active Substance: AFLIBERCEPT
     Dosage: 7 DOSES IN THE LEFT EYE; 40 MG/ML
     Route: 031
     Dates: start: 20200908, end: 20210311

REACTIONS (2)
  - Blindness [Unknown]
  - Retinal oedema [Unknown]
